FAERS Safety Report 15393720 (Version 1)
Quarter: 2018Q3

REPORT INFORMATION
  Report Type: Spontaneous
  Country: US (occurrence: US)
  Receive Date: 20180917
  Receipt Date: 20180917
  Transmission Date: 20181010
  Serious: No
  Sender: FDA-Public Use
  Company Number: US-009507513-1809USA004205

PATIENT
  Age: 26 Year
  Sex: Female
  Weight: 95.24 kg

DRUGS (1)
  1. NEXPLANON [Suspect]
     Active Substance: ETONOGESTREL
     Indication: CONTRACEPTION
     Dosage: 3 YEARS, LEFT ARM
     Route: 059
     Dates: start: 201509

REACTIONS (9)
  - Amenorrhoea [Not Recovered/Not Resolved]
  - Incorrect drug administration duration [Unknown]
  - Libido decreased [Not Recovered/Not Resolved]
  - Mood swings [Not Recovered/Not Resolved]
  - Headache [Not Recovered/Not Resolved]
  - Memory impairment [Not Recovered/Not Resolved]
  - Menstruation irregular [Not Recovered/Not Resolved]
  - Menorrhagia [Not Recovered/Not Resolved]
  - Weight increased [Not Recovered/Not Resolved]

NARRATIVE: CASE EVENT DATE: 20180906
